FAERS Safety Report 19053308 (Version 1)
Quarter: 2021Q1

REPORT INFORMATION
  Report Type: Spontaneous
  Country: CN (occurrence: CN)
  Receive Date: 20210324
  Receipt Date: 20210324
  Transmission Date: 20210420
  Serious: Yes (Other)
  Sender: FDA-Public Use
  Company Number: CN-BAYER-2021-108472

PATIENT
  Age: 38 Year
  Sex: Male

DRUGS (1)
  1. ULTRAVIST [Suspect]
     Active Substance: IOPROMIDE
     Indication: SCAN WITH CONTRAST
     Dosage: UNK UNK, ONCE
     Dates: start: 20210317, end: 20210317

REACTIONS (5)
  - Mouth swelling [None]
  - Blood pressure decreased [Recovering/Resolving]
  - Amaurosis [None]
  - Hypoaesthesia oral [None]
  - Lip swelling [None]

NARRATIVE: CASE EVENT DATE: 20210317
